FAERS Safety Report 5099968-2 (Version None)
Quarter: 2006Q3

REPORT INFORMATION
  Report Type: 
  Country: None (occurrence: None)
  Receive Date: 20060906
  Receipt Date: 20060906
  Transmission Date: 20061208
  Serious: Yes (Other)
  Sender: FDA-Public Use
  Company Number: None

PATIENT
  Sex: Male
  Weight: 75.5693 kg

DRUGS (2)
  1. OXYCONTIN [Suspect]
     Indication: INTERVERTEBRAL DISC PROTRUSION
     Dosage: ONE BID
  2. OXYCONTIN [Suspect]
     Indication: CHEST PAIN
     Dosage: ONE BID

REACTIONS (1)
  - STOMACH DISCOMFORT [None]
